FAERS Safety Report 23949629 (Version 1)
Quarter: 2024Q2

REPORT INFORMATION
  Report Type: Spontaneous
  Country: AT (occurrence: AT)
  Receive Date: 20240607
  Receipt Date: 20240607
  Transmission Date: 20240716
  Serious: Yes (Death, Other)
  Sender: FDA-Public Use
  Company Number: AT-JNJFOC-20240614165

PATIENT
  Age: 5 Decade
  Sex: Male

DRUGS (1)
  1. TALVEY [Suspect]
     Active Substance: TALQUETAMAB-TGVS
     Indication: Plasma cell myeloma
     Route: 058

REACTIONS (7)
  - Death [Fatal]
  - Plasma cell myeloma [Unknown]
  - General physical condition abnormal [Unknown]
  - Transaminases increased [Unknown]
  - Decreased appetite [Unknown]
  - Weight decreased [Unknown]
  - Infection [Unknown]
